FAERS Safety Report 8088254-4 (Version None)
Quarter: 2012Q1

REPORT INFORMATION
  Report Type: 
  Country: None (occurrence: None)
  Receive Date: 20120131
  Receipt Date: 20120126
  Transmission Date: 20120608
  Serious: Yes (Other)
  Sender: FDA-Public Use
  Company Number: US-SP-2011-07515

PATIENT
  Age: 80 Year
  Sex: Male

DRUGS (7)
  1. PRILOSEC [Concomitant]
  2. PERSULFATE [Concomitant]
  3. UREXATHAL [Concomitant]
  4. GEMFIBROZIL [Concomitant]
  5. MITOMYCIN [Concomitant]
     Indication: BLADDER CANCER
  6. MACROBID [Concomitant]
  7. THERACYS [Suspect]
     Indication: BLADDER CANCER
     Route: 043
     Dates: start: 20110629, end: 20110629

REACTIONS (3)
  - PROSTATITIS [None]
  - MUSCULOSKELETAL DISCOMFORT [None]
  - BLADDER DISCOMFORT [None]
